FAERS Safety Report 11455575 (Version 1)
Quarter: 2015Q3

REPORT INFORMATION
  Report Type: Spontaneous
  Country: US (occurrence: US)
  Receive Date: 20150903
  Receipt Date: 20150903
  Transmission Date: 20151125
  Serious: No
  Sender: FDA-Public Use
  Company Number: US-BEH-2014043909

PATIENT
  Sex: Female
  Weight: 88 kg

DRUGS (27)
  1. SYMBICORT [Concomitant]
     Active Substance: BUDESONIDE\FORMOTEROL FUMARATE DIHYDRATE
  2. EPIPEN [Concomitant]
     Active Substance: EPINEPHRINE
  3. FELODIPINE. [Concomitant]
     Active Substance: FELODIPINE
  4. TYLENOL [Concomitant]
     Active Substance: ACETAMINOPHEN
  5. ZEMAIRA [Suspect]
     Active Substance: .ALPHA.1-PROTEINASE INHIBITOR HUMAN
     Indication: ALPHA-1 ANTI-TRYPSIN DEFICIENCY
     Dosage: 7.2 ML/MIN
     Route: 042
  6. IPRAT-ALBUT [Concomitant]
  7. DIPHENHYDRAMINE. [Concomitant]
     Active Substance: DIPHENHYDRAMINE
  8. HEPARIN [Concomitant]
     Active Substance: HEPARIN SODIUM
  9. NORMAL SALINE [Concomitant]
     Active Substance: SODIUM CHLORIDE
  10. LIDOCAINE. [Concomitant]
     Active Substance: LIDOCAINE
  11. LOVASTATIN. [Concomitant]
     Active Substance: LOVASTATIN
  12. FUROSEMIDE. [Concomitant]
     Active Substance: FUROSEMIDE
  13. SPIRIVA [Concomitant]
     Active Substance: TIOTROPIUM BROMIDE MONOHYDRATE
  14. MEDROL DOSE PAK [Concomitant]
  15. LEVOTHYROXINE. [Concomitant]
     Active Substance: LEVOTHYROXINE
  16. OMEPRAZOLE. [Concomitant]
     Active Substance: OMEPRAZOLE
  17. LEVAQUIN [Concomitant]
     Active Substance: LEVOFLOXACIN
  18. LIDOCAINE/PRILOCAINE [Concomitant]
  19. ZEMAIRA [Suspect]
     Active Substance: .ALPHA.1-PROTEINASE INHIBITOR HUMAN
     Indication: EMPHYSEMA
     Dosage: 7.2 ML/MIN
     Route: 042
  20. KLOR-CON [Concomitant]
     Active Substance: POTASSIUM CHLORIDE
  21. CEPHALEXIN. [Concomitant]
     Active Substance: CEPHALEXIN
  22. SODIUM CHLORIDE. [Concomitant]
     Active Substance: SODIUM CHLORIDE
  23. CORTISONE [Concomitant]
     Active Substance: CORTISONE\HYDROCORTISONE
  24. SINGULAIR [Concomitant]
     Active Substance: MONTELUKAST SODIUM
  25. ALLEGRA [Concomitant]
     Active Substance: FEXOFENADINE HYDROCHLORIDE
  26. MUCINEX ER [Concomitant]
  27. VENTOLIN [Concomitant]
     Active Substance: ALBUTEROL SULFATE

REACTIONS (1)
  - Cough [Unknown]
